FAERS Safety Report 13538023 (Version 1)
Quarter: 2017Q2

REPORT INFORMATION
  Report Type: Spontaneous
  Country: IL (occurrence: IL)
  Receive Date: 20170511
  Receipt Date: 20170511
  Transmission Date: 20170830
  Serious: Yes (Hospitalization, Other)
  Sender: FDA-Public Use
  Company Number: IL-ROCHE-1931856

PATIENT
  Sex: Male

DRUGS (2)
  1. COTELLIC [Suspect]
     Active Substance: COBIMETINIB
     Route: 065
  2. COTELLIC [Suspect]
     Active Substance: COBIMETINIB
     Indication: ERDHEIM-CHESTER DISEASE
     Route: 065

REACTIONS (3)
  - Rash maculo-papular [Recovered/Resolved]
  - Rash pustular [Recovered/Resolved]
  - Off label use [Unknown]
